FAERS Safety Report 9547376 (Version 2)
Quarter: 2013Q4

REPORT INFORMATION
  Report Type: Spontaneous
  Country: IT (occurrence: IT)
  Receive Date: 20130924
  Receipt Date: 20131004
  Transmission Date: 20140711
  Serious: Yes (Hospitalization, Other)
  Sender: FDA-Public Use
  Company Number: IT-JNJFOC-20130908523

PATIENT
  Age: 28 Year
  Sex: Female

DRUGS (2)
  1. SERENASE [Suspect]
     Indication: INSOMNIA
     Dosage: 40MG (5MG-8TABLETS) ONCE AND LATER 50 MG (5MG- 10TABLETS)
     Route: 048
     Dates: start: 20130809, end: 20130809
  2. CARBOLITHIUM [Concomitant]
     Indication: BIPOLAR DISORDER
     Route: 048
     Dates: start: 20080501, end: 20130809

REACTIONS (5)
  - Confusional state [Recovered/Resolved]
  - Throat tightness [Recovered/Resolved]
  - Overdose [Unknown]
  - Drug abuse [Unknown]
  - Off label use [Unknown]
